FAERS Safety Report 9596279 (Version 2)
Quarter: 2013Q4

REPORT INFORMATION
  Report Type: Spontaneous
  Country: DE (occurrence: DE)
  Receive Date: 20131004
  Receipt Date: 20131118
  Transmission Date: 20140711
  Serious: Yes (Death, Hospitalization)
  Sender: FDA-Public Use
  Company Number: DE-PFIZER INC-2013282159

PATIENT
  Age: 51 Year
  Sex: Female
  Weight: 57 kg

DRUGS (2)
  1. CISPLATIN TEVA [Suspect]
     Indication: TRANSITIONAL CELL CARCINOMA
     Dosage: 118 MG, UNK
     Route: 042
     Dates: start: 201308, end: 201308
  2. GEMCITABINE [Suspect]
     Indication: TRANSITIONAL CELL CARCINOMA
     Dosage: 1680 MG, UNK
     Route: 042
     Dates: start: 20130813, end: 20130820

REACTIONS (5)
  - Lung disorder [Fatal]
  - Respiratory failure [Fatal]
  - Alveolitis [Not Recovered/Not Resolved]
  - Lung infiltration [Not Recovered/Not Resolved]
  - Pyrexia [Unknown]
